FAERS Safety Report 5400087-3 (Version None)
Quarter: 2007Q3

REPORT INFORMATION
  Report Type: 
  Country: None (occurrence: None)
  Receive Date: 20070726
  Receipt Date: 20070726
  Transmission Date: 20080115
  Serious: Yes (Other)
  Sender: FDA-Public Use
  Company Number: None

PATIENT
  Age: 57 Year
  Sex: Male
  Weight: 61.2356 kg

DRUGS (1)
  1. LYRICA [Suspect]
     Indication: EPILEPSY
     Dosage: TWO 75MG CAPSULES BEDTIME PO
     Route: 048
     Dates: start: 20051221, end: 20070725

REACTIONS (2)
  - NIGHTMARE [None]
  - PARANOIA [None]
